FAERS Safety Report 5444205-X (Version None)
Quarter: 2007Q3

REPORT INFORMATION
  Report Type: 
  Country: None (occurrence: None)
  Receive Date: 20070906
  Receipt Date: 20070828
  Transmission Date: 20080115
  Serious: Yes (Hospitalization)
  Sender: FDA-Public Use
  Company Number: US-KINGPHARMUSA00001-K200701098

PATIENT

DRUGS (12)
  1. ALTACE [Suspect]
     Indication: HYPERTENSION
     Dosage: 1.25 MG, QD
     Route: 048
     Dates: end: 20060926
  2. LASILIX /00032601/ [Suspect]
     Indication: HYPERTENSION
     Dosage: 60 MG, QD
     Route: 048
     Dates: end: 20060926
  3. LASILIX /00032601/ [Suspect]
     Dosage: 20 MG, QD
     Route: 048
  4. CORTANCYL [Concomitant]
  5. URAPIDIL [Concomitant]
  6. ALLOPURINOL [Concomitant]
  7. KARDEGIC                           /00002703/ [Concomitant]
  8. ALPRAZOLAM [Concomitant]
  9. ZOPICLONE [Concomitant]
  10. ALENDRONATE SODIUM [Concomitant]
  11. COLECALCIFEROL [Concomitant]
  12. CALCIUM [Concomitant]

REACTIONS (9)
  - BLOOD CREATININE INCREASED [None]
  - DRUG INTERACTION [None]
  - FACIAL PALSY [None]
  - GENERAL PHYSICAL HEALTH DETERIORATION [None]
  - HYPOCHLORAEMIA [None]
  - HYPONATRAEMIA [None]
  - MALAISE [None]
  - RENAL FAILURE CHRONIC [None]
  - VASCULAR CALCIFICATION [None]
